FAERS Safety Report 10299308 (Version 2)
Quarter: 2014Q3

REPORT INFORMATION
  Report Type: Spontaneous
  Country: US (occurrence: US)
  Receive Date: 20140711
  Receipt Date: 20140711
  Transmission Date: 20150326
  Serious: No
  Sender: FDA-Public Use
  Company Number: US-GILEAD-2013-0079129

PATIENT
  Age: 68 Year
  Sex: Female

DRUGS (2)
  1. LETAIRIS [Suspect]
     Active Substance: AMBRISENTAN
     Indication: PULMONARY HYPERTENSION
     Dosage: 5 MG, QD
     Dates: start: 20130610, end: 20130710
  2. LETAIRIS [Suspect]
     Active Substance: AMBRISENTAN
     Indication: SCLERODERMA

REACTIONS (5)
  - Heart rate increased [Unknown]
  - Dyspnoea [Unknown]
  - Oedema [Unknown]
  - Nausea [Unknown]
  - Lethargy [Unknown]

NARRATIVE: CASE EVENT DATE: 20130610
